FAERS Safety Report 18616929 (Version 1)
Quarter: 2020Q4

REPORT INFORMATION
  Report Type: Report from Study
  Country: US (occurrence: US)
  Receive Date: 20201215
  Receipt Date: 20201215
  Transmission Date: 20210114
  Serious: Yes (Hospitalization, Other)
  Sender: FDA-Public Use
  Company Number: US-GILEAD-2020-0508668

PATIENT
  Sex: Female

DRUGS (29)
  1. AZITHROMYCIN ANHYDROUS. [Concomitant]
     Active Substance: AZITHROMYCIN ANHYDROUS
  2. BUDESONIDE. [Concomitant]
     Active Substance: BUDESONIDE
  3. FLUTICASONE. [Concomitant]
     Active Substance: FLUTICASONE
  4. FOLIC ACID. [Concomitant]
     Active Substance: FOLIC ACID
  5. LORATADINE. [Concomitant]
     Active Substance: LORATADINE
  6. PROAIR HFA [Concomitant]
     Active Substance: ALBUTEROL SULFATE
  7. ALBUTEROL [SALBUTAMOL] [Concomitant]
     Active Substance: ALBUTEROL
  8. BROVANA [Concomitant]
     Active Substance: ARFORMOTEROL TARTRATE
  9. VITAMIN D3 [Concomitant]
     Active Substance: CHOLECALCIFEROL
  10. CALCIUM CARBONATE. [Concomitant]
     Active Substance: CALCIUM CARBONATE
  11. SODIUM CHLORIDE. [Concomitant]
     Active Substance: SODIUM CHLORIDE
  12. AZTREONAM LYSINE [Suspect]
     Active Substance: AZTREONAM LYSINE
     Indication: CYSTIC FIBROSIS
  13. LACTULOSE. [Concomitant]
     Active Substance: LACTULOSE
  14. SPIRIVA [Concomitant]
     Active Substance: TIOTROPIUM BROMIDE MONOHYDRATE
  15. URSODIOL. [Concomitant]
     Active Substance: URSODIOL
  16. SUBOXONE [Concomitant]
     Active Substance: BUPRENORPHINE HYDROCHLORIDE\NALOXONE HYDROCHLORIDE
  17. PULMOZYME [Concomitant]
     Active Substance: DORNASE ALFA
  18. OMEPRAZOLE. [Concomitant]
     Active Substance: OMEPRAZOLE
  19. VITAMIN C [Concomitant]
     Active Substance: ASCORBIC ACID
  20. DIPHENHYDRAMINE. [Concomitant]
     Active Substance: DIPHENHYDRAMINE
  21. KITABIS PAK [Concomitant]
     Active Substance: TOBRAMYCIN
  22. FERROUS SULFATE. [Concomitant]
     Active Substance: FERROUS SULFATE
  23. ADVAIR HFA [Concomitant]
     Active Substance: FLUTICASONE PROPIONATE\SALMETEROL XINAFOATE
  24. ARTIFICIAL TEARS [HYPROMELLOSE] [Concomitant]
  25. PEG [PREGABALIN] [Concomitant]
  26. AZTREONAM LYSINE [Suspect]
     Active Substance: AZTREONAM LYSINE
     Indication: PSEUDOMONAS INFECTION
     Dosage: UNK
     Route: 065
  27. TRIKAFTA [Concomitant]
     Active Substance: ELEXACAFTOR\IVACAFTOR\TEZACAFTOR
  28. AQUADEKS [Concomitant]
     Active Substance: MINERALS\VITAMINS
  29. ZENPEP [Concomitant]
     Active Substance: PANCRELIPASE AMYLASE\PANCRELIPASE LIPASE\PANCRELIPASE PROTEASE

REACTIONS (1)
  - Cystic fibrosis [Not Recovered/Not Resolved]
